FAERS Safety Report 5150062-1 (Version None)
Quarter: 2006Q4

REPORT INFORMATION
  Report Type: 
  Country: None (occurrence: None)
  Receive Date: 20061113
  Receipt Date: 20061103
  Transmission Date: 20070319
  Serious: Yes (Hospitalization)
  Sender: FDA-Public Use
  Company Number: FR-ABBOTT-06P-056-0349356-00

PATIENT
  Age: 51 Year
  Sex: Female
  Weight: 74 kg

DRUGS (3)
  1. KALETRA [Suspect]
     Indication: HIV INFECTION
     Route: 048
     Dates: start: 20060215
  2. SERETIDE [Interacting]
     Indication: ASTHMA
     Route: 055
     Dates: start: 20060801, end: 20061019
  3. EMTRICITABINE, TENOFOVIR, DISOPROXIL [Concomitant]
     Indication: HIV INFECTION
     Route: 048
     Dates: start: 20060215

REACTIONS (3)
  - DRUG INTERACTION [None]
  - SWELLING FACE [None]
  - WEIGHT INCREASED [None]
